FAERS Safety Report 6596584-8 (Version None)
Quarter: 2010Q1

REPORT INFORMATION
  Report Type: 
  Country: None (occurrence: None)
  Receive Date: 20100222
  Receipt Date: 20100222
  Transmission Date: 20100710
  Serious: Yes (Life-Threatening, Hospitalization)
  Sender: FDA-Public Use
  Company Number: None

PATIENT
  Age: 55 Year
  Sex: Female
  Weight: 74.8435 kg

DRUGS (2)
  1. NABUMETONE [Suspect]
     Indication: TENDONITIS
     Dosage: 2 TABLETS WITH FOOD EVERY DAY ONCE A DAY PO
     Route: 048
     Dates: start: 20091228, end: 20100105
  2. NAPROXEN [Suspect]
     Indication: TENDONITIS
     Dosage: 1 TABLET EVERY 12 HOURS 2 TIMES A DAY PO
     Route: 048
     Dates: start: 20100106, end: 20100114

REACTIONS (32)
  - AGITATION [None]
  - ANXIETY [None]
  - ASTHMA [None]
  - CHEST PAIN [None]
  - COGNITIVE DISORDER [None]
  - COMA [None]
  - CONFUSIONAL STATE [None]
  - CONTUSION [None]
  - CONVULSION [None]
  - CRYING [None]
  - DEPRESSION [None]
  - DISTURBANCE IN ATTENTION [None]
  - EPISTAXIS [None]
  - FATIGUE [None]
  - FLUID RETENTION [None]
  - HALLUCINATION [None]
  - INFLUENZA LIKE ILLNESS [None]
  - INSOMNIA [None]
  - JAUNDICE [None]
  - MEMORY IMPAIRMENT [None]
  - MYALGIA [None]
  - NAUSEA [None]
  - NERVOUSNESS [None]
  - OCULAR HYPERAEMIA [None]
  - PRURITUS [None]
  - SCAB [None]
  - SOMNOLENCE [None]
  - THROMBOSIS [None]
  - TINNITUS [None]
  - TREMOR [None]
  - VISION BLURRED [None]
  - VOMITING [None]
